FAERS Safety Report 6060938-9 (Version None)
Quarter: 2009Q1

REPORT INFORMATION
  Report Type: 
  Country: None (occurrence: None)
  Receive Date: 20090202
  Receipt Date: 20090120
  Transmission Date: 20090719
  Serious: Yes (Other)
  Sender: FDA-Public Use
  Company Number: US-ROCHE-609731

PATIENT
  Sex: Male

DRUGS (2)
  1. PEGASYS [Suspect]
     Dosage: OTHER INDICATION: HIV
     Route: 065
     Dates: start: 20070817, end: 20080228
  2. RIBAVIRIN [Suspect]
     Dosage: OTHER INDICATION: HIV
     Route: 065
     Dates: start: 20070817, end: 20080228

REACTIONS (5)
  - APPENDICECTOMY [None]
  - BEDRIDDEN [None]
  - PAIN [None]
  - RED BLOOD CELL COUNT DECREASED [None]
  - WHITE BLOOD CELL COUNT DECREASED [None]
